FAERS Safety Report 9738553 (Version 2)
Quarter: 2014Q1

REPORT INFORMATION
  Report Type: Spontaneous
  Country: US (occurrence: US)
  Receive Date: 20131209
  Receipt Date: 20140111
  Transmission Date: 20141002
  Serious: No
  Sender: FDA-Public Use
  Company Number: US-009507513-1311USA008334

PATIENT
  Age: 78 Year
  Sex: Male

DRUGS (9)
  1. ZOCOR [Suspect]
     Route: 048
  2. LASIX (FUROSEMIDE) [Suspect]
  3. COUMADIN [Concomitant]
  4. AMARYL [Concomitant]
  5. JANUVIA [Concomitant]
     Indication: TYPE 2 DIABETES MELLITUS
     Dosage: UNK
     Route: 048
     Dates: start: 2006
  6. LISINOPRIL [Concomitant]
  7. WELCHOL [Concomitant]
  8. CHOLESTYRAMINE RESIN [Concomitant]
  9. ACTOS [Concomitant]

REACTIONS (1)
  - Thrombocytopenia [Not Recovered/Not Resolved]
